FAERS Safety Report 16091523 (Version 1)
Quarter: 2019Q1

REPORT INFORMATION
  Report Type: Spontaneous
  Country: DK (occurrence: DK)
  Receive Date: 20190319
  Receipt Date: 20190319
  Transmission Date: 20190418
  Serious: Yes (Hospitalization, Disabling)
  Sender: FDA-Public Use
  Company Number: DK-TEVA-2019-DK-1024124

PATIENT
  Age: 47 Year
  Sex: Female

DRUGS (1)
  1. PREDNISOLONE. [Suspect]
     Active Substance: PREDNISOLONE
     Indication: HYPERSENSITIVITY
     Dosage: 1 DOSAGE FORMS DAILY; STRENGTH: VARYING.
     Route: 048
     Dates: start: 20160211, end: 20160623

REACTIONS (7)
  - Thoracic vertebral fracture [Not Recovered/Not Resolved]
  - Back pain [Not Recovered/Not Resolved]
  - Vertebroplasty [Unknown]
  - Dental caries [Not Recovered/Not Resolved]
  - Kyphosis [Unknown]
  - Osteoporosis [Not Recovered/Not Resolved]
  - Lumbar vertebral fracture [Not Recovered/Not Resolved]

NARRATIVE: CASE EVENT DATE: 20100613
